FAERS Safety Report 9872017 (Version 2)
Quarter: 2014Q1

REPORT INFORMATION
  Report Type: Spontaneous
  Country: US (occurrence: US)
  Receive Date: 20140205
  Receipt Date: 20140205
  Transmission Date: 20141002
  Serious: No
  Sender: FDA-Public Use
  Company Number: US-ALLERGAN-1301367US

PATIENT
  Age: 57 Year
  Sex: Female

DRUGS (10)
  1. BOTOX COSMETIC [Suspect]
     Indication: SKIN WRINKLING
     Dosage: UNK, SINGLE
     Route: 030
     Dates: start: 201303, end: 201303
  2. BOTOX COSMETIC [Suspect]
     Indication: SKIN WRINKLING
     Dosage: UNK, SINGLE
     Route: 030
     Dates: start: 20121206, end: 20121206
  3. METFORMIN [Concomitant]
     Indication: DIABETES MELLITUS
     Dosage: 1000 MG, BID
     Route: 048
  4. CYMBALTA [Concomitant]
     Indication: DEPRESSION
     Dosage: 60 MG, BID
     Route: 048
  5. MAXZIDE [Concomitant]
     Indication: CARPAL TUNNEL SYNDROME
     Dosage: 60 UNK, UNK
     Route: 048
  6. SPIRONOLACTONE [Concomitant]
     Indication: HAIR GROWTH ABNORMAL
     Dosage: UNK
  7. KCL [Concomitant]
     Indication: SUPPLEMENTATION THERAPY
     Dosage: 10 MEQ, QD
     Route: 048
  8. ZOCOR [Concomitant]
     Indication: BLOOD CHOLESTEROL INCREASED
     Dosage: 40 MG, QD
     Route: 048
  9. LISINOPRIL [Concomitant]
     Indication: PRODUCT USED FOR UNKNOWN INDICATION
     Dosage: 5 MG, QD
     Route: 048
  10. BUPROPRION XL [Concomitant]
     Indication: DEPRESSION
     Dosage: 150 MG, BID
     Route: 048

REACTIONS (1)
  - Drug ineffective [Unknown]
